FAERS Safety Report 9490595 (Version 1)
Quarter: 2013Q3

REPORT INFORMATION
  Report Type: Spontaneous
  Country: US (occurrence: None)
  Receive Date: 20130828
  Receipt Date: 20130828
  Transmission Date: 20140515
  Serious: No
  Sender: FDA-Public Use
  Company Number: None

PATIENT
  Age: 77 Year
  Sex: 0

DRUGS (6)
  1. SYMBICORT [Suspect]
     Dates: start: 201207
  2. CALCIUM [Concomitant]
  3. MAGNESIUM [Concomitant]
  4. ZINC [Concomitant]
  5. VITAMIN D-3 [Concomitant]
  6. FISH OIL [Concomitant]

REACTIONS (8)
  - Rash [None]
  - Diarrhoea [None]
  - Back pain [None]
  - Constipation [None]
  - Drug interaction [None]
  - Painful defaecation [None]
  - Asthma [None]
  - Muscle spasms [None]
